FAERS Safety Report 12342362 (Version 2)
Quarter: 2016Q3

REPORT INFORMATION
  Report Type: Spontaneous
  Country: GB (occurrence: GB)
  Receive Date: 20160506
  Receipt Date: 20160727
  Transmission Date: 20161109
  Serious: Yes (Life-Threatening, Other)
  Sender: FDA-Public Use
  Company Number: GB-PFIZER INC-2016237946

PATIENT
  Age: 61 Year
  Sex: Male
  Weight: 105 kg

DRUGS (8)
  1. DOXAZOSIN MESILATE [Concomitant]
     Active Substance: DOXAZOSIN MESYLATE
     Dosage: UNK
     Route: 065
  2. REGURIN [Concomitant]
     Dosage: UNK
  3. INDAPAMIDE. [Suspect]
     Active Substance: INDAPAMIDE
     Indication: HYPERTENSION
     Dosage: UNK
     Route: 065
     Dates: start: 20141030, end: 2015
  4. VALSARTAN. [Concomitant]
     Active Substance: VALSARTAN
     Dosage: 80 MG, QD
  5. FUROSEMIDE. [Concomitant]
     Active Substance: FUROSEMIDE
     Dosage: 60 UNK, 20 MG IN MORNING, 40 MG IN EVENING
     Route: 065
     Dates: start: 20160215, end: 20160309
  6. RAMIPRIL. [Concomitant]
     Active Substance: RAMIPRIL
     Dosage: UNK
  7. AMLODIPINE BESILATE [Suspect]
     Active Substance: AMLODIPINE BESYLATE
     Indication: HYPERTENSION
     Dosage: UNK
     Dates: start: 2015, end: 2015
  8. FUROSEMIDE. [Concomitant]
     Active Substance: FUROSEMIDE
     Dosage: 20 MG, BID

REACTIONS (2)
  - Oedema peripheral [Recovered/Resolved with Sequelae]
  - Glomerular filtration rate decreased [Unknown]

NARRATIVE: CASE EVENT DATE: 2015
